FAERS Safety Report 8107653-5 (Version None)
Quarter: 2012Q1

REPORT INFORMATION
  Report Type: 
  Country: None (occurrence: None)
  Receive Date: 20120202
  Receipt Date: 20120123
  Transmission Date: 20120608
  Serious: Yes (Hospitalization)
  Sender: FDA-Public Use
  Company Number: FR-BRISTOL-MYERS SQUIBB COMPANY-16367310

PATIENT
  Age: 83 Year
  Sex: Male

DRUGS (7)
  1. ALDACTONE [Concomitant]
  2. COUMADIN [Suspect]
     Indication: DEEP VEIN THROMBOSIS
     Route: 048
     Dates: start: 20100126, end: 20100203
  3. ESCITALOPRAM OXALATE [Concomitant]
  4. DURAGESIC-100 [Concomitant]
  5. AVODART [Concomitant]
  6. VALPROIC ACID [Concomitant]
  7. INNOHEP [Suspect]
     Indication: DEEP VEIN THROMBOSIS
     Route: 058
     Dates: start: 20100126

REACTIONS (3)
  - HAEMATOMA [None]
  - RENAL FAILURE [None]
  - HAEMOGLOBIN DECREASED [None]
